FAERS Safety Report 25886115 (Version 1)
Quarter: 2025Q4

REPORT INFORMATION
  Report Type: Spontaneous
  Country: RS (occurrence: RS)
  Receive Date: 20251006
  Receipt Date: 20251006
  Transmission Date: 20260118
  Serious: Yes (Death, Hospitalization)
  Sender: INCYTE
  Company Number: RS-002147023-NVSC2025RS153368

PATIENT

DRUGS (1)
  1. RUXOLITINIB [Suspect]
     Active Substance: RUXOLITINIB
     Indication: Myelofibrosis
     Dosage: 15 MG, BID
     Route: 065

REACTIONS (2)
  - Cerebrovascular disorder [Fatal]
  - Oesophageal varices haemorrhage [Unknown]
